FAERS Safety Report 4285561-8 (Version None)
Quarter: 2004Q1

REPORT INFORMATION
  Report Type: 
  Country: None (occurrence: None)
  Receive Date: 20040203
  Receipt Date: 20040122
  Transmission Date: 20041129
  Serious: Yes (Death)
  Sender: FDA-Public Use
  Company Number: 03P-056-0238188-00

PATIENT
  Age: 59 Year
  Sex: Male

DRUGS (10)
  1. DEPAKOTE [Suspect]
     Indication: DELUSION
     Dosage: SEE IMAGE
     Route: 048
     Dates: start: 20030528, end: 20030601
  2. DEPAKOTE [Suspect]
     Indication: MANIA
     Dosage: SEE IMAGE
     Route: 048
     Dates: start: 20030528, end: 20030601
  3. DEPAKOTE [Suspect]
     Indication: DELUSION
     Dosage: SEE IMAGE
     Route: 048
     Dates: start: 20030601
  4. DEPAKOTE [Suspect]
     Indication: MANIA
     Dosage: SEE IMAGE
     Route: 048
     Dates: start: 20030601
  5. HALOPERIDOL [Suspect]
     Indication: DELUSION
     Dosage: SEE IMAGE
     Route: 030
     Dates: start: 20030501, end: 20030501
  6. HALOPERIDOL [Suspect]
     Indication: MANIA
     Dosage: SEE IMAGE
     Route: 030
     Dates: start: 20030501, end: 20030501
  7. HALOPERIDOL [Suspect]
     Indication: DELUSION
     Dosage: SEE IMAGE
     Route: 030
     Dates: start: 20030526
  8. HALOPERIDOL [Suspect]
     Indication: MANIA
     Dosage: SEE IMAGE
     Route: 030
     Dates: start: 20030526
  9. RILMENIDINE [Concomitant]
  10. TARKA (TARKA ER) (TRANDOLAPRIL/VERAPMIL) (TRANDOLAPRIL/VERAPAMIL) [Concomitant]

REACTIONS (3)
  - COMPLETED SUICIDE [None]
  - DRUG INTERACTION [None]
  - INTENTIONAL OVERDOSE [None]
